FAERS Safety Report 4269178-7 (Version None)
Quarter: 2004Q1

REPORT INFORMATION
  Report Type: 
  Country: None (occurrence: None)
  Receive Date: 20040108
  Receipt Date: 20031229
  Transmission Date: 20041129
  Serious: Yes (Life-Threatening, Hospitalization, Disabling)
  Sender: FDA-Public Use
  Company Number: 03P-034-0234327-00

PATIENT
  Age: 46 Year
  Sex: Male

DRUGS (5)
  1. KALETRA [Suspect]
     Indication: HIV INFECTION
     Dosage: 3 CAPSULES DAILY, PER ORAL
     Route: 048
     Dates: start: 20030901, end: 20030917
  2. KALETRA [Suspect]
     Indication: HIV INFECTION
     Dosage: 3 CAPSULES DAILY, PER ORAL
     Route: 048
     Dates: start: 20030101
  3. ZIDOVUDINE W/LAMIVUDINE [Suspect]
     Indication: HIV INFECTION
     Dosage: 1 CAPSULE, 1 IN 12 HR, PER ORAL
     Route: 048
     Dates: start: 20030901, end: 20030917
  4. BACTRIM [Concomitant]
  5. MULTIVITAMIN [Concomitant]

REACTIONS (11)
  - CYANOSIS [None]
  - CYTOMEGALOVIRUS INFECTION [None]
  - EXTREMITY NECROSIS [None]
  - FOOT AMPUTATION [None]
  - IMMUNE RECONSTITUTION SYNDROME [None]
  - MYALGIA [None]
  - OXYGEN SATURATION DECREASED [None]
  - PARAESTHESIA [None]
  - POLYARTERITIS NODOSA [None]
  - SEPTIC SHOCK [None]
  - VASCULITIS [None]
